FAERS Safety Report 5154232-8 (Version None)
Quarter: 2006Q4

REPORT INFORMATION
  Report Type: 
  Country: None (occurrence: None)
  Receive Date: 20061114
  Receipt Date: 20061031
  Transmission Date: 20070319
  Serious: Yes (Other)
  Sender: FDA-Public Use
  Company Number: 2006SP005456

PATIENT
  Age: 52 Year
  Sex: Female

DRUGS (1)
  1. NASONEX [Suspect]
     Indication: SINUSITIS
     Dosage: NAS
     Route: 045
     Dates: start: 20060301, end: 20060301

REACTIONS (2)
  - AGEUSIA [None]
  - ANOSMIA [None]
